FAERS Safety Report 4627673-2 (Version None)
Quarter: 2005Q2

REPORT INFORMATION
  Report Type: 
  Country: None (occurrence: None)
  Receive Date: 20050401
  Receipt Date: 20050401
  Transmission Date: 20051028
  Serious: Yes (Other)
  Sender: FDA-Public Use
  Company Number: None

PATIENT
  Sex: Female
  Weight: 83.4619 kg

DRUGS (2)
  1. CLODRONATE [Suspect]
     Indication: BREAST CANCER
     Dosage: QD ORAL
     Route: 048
  2. PLACEBO [Suspect]

REACTIONS (1)
  - ARTHRITIS [None]
